FAERS Safety Report 20512300 (Version 1)
Quarter: 2022Q1

REPORT INFORMATION
  Report Type: Spontaneous
  Country: RU (occurrence: None)
  Receive Date: 20220224
  Receipt Date: 20220224
  Transmission Date: 20220423
  Serious: Yes (Other)
  Sender: FDA-Public Use
  Company Number: RU-Fresenius Kabi-FK202202066

PATIENT
  Age: 15 Year
  Sex: Female

DRUGS (3)
  1. PROPOFOL [Suspect]
     Active Substance: PROPOFOL
     Indication: Acute lymphocytic leukaemia
     Dosage: 2 MG/KG/H FOR 24 HOURS
     Route: 065
  2. NITRAZEPAM [Suspect]
     Active Substance: NITRAZEPAM
     Indication: Acute lymphocytic leukaemia
     Dosage: EXTENDED INFUSION AT A DOSE OF 0.1 MG/KG/H
     Route: 065
  3. LEVETIRACETAM [Suspect]
     Active Substance: LEVETIRACETAM
     Indication: Acute lymphocytic leukaemia
     Dosage: 500 MG 2 TIMES A DAY
     Route: 065

REACTIONS (1)
  - Respiratory arrest [Unknown]
